FAERS Safety Report 5708437-5 (Version None)
Quarter: 2008Q2

REPORT INFORMATION
  Report Type: 
  Country: None (occurrence: None)
  Receive Date: 20080417
  Receipt Date: 20080414
  Transmission Date: 20081010
  Serious: Yes (Other)
  Sender: FDA-Public Use
  Company Number: US-PFIZER INC-2007089466

PATIENT
  Sex: Male
  Weight: 75 kg

DRUGS (8)
  1. DETROL LA [Suspect]
     Indication: HYPERTONIC BLADDER
  2. CORTISONE [Suspect]
     Indication: BACK INJURY
  3. ATENOLOL [Concomitant]
  4. VASOTEC [Concomitant]
  5. AVAPRO [Concomitant]
  6. ZOCOR [Concomitant]
  7. TRAMADOL HCL [Concomitant]
  8. TYLENOL (CAPLET) [Concomitant]

REACTIONS (2)
  - BONE DENSITY DECREASED [None]
  - MICTURITION URGENCY [None]
